FAERS Safety Report 6735340-4 (Version None)
Quarter: 2010Q2

REPORT INFORMATION
  Report Type: 
  Country: None (occurrence: None)
  Receive Date: 20100519
  Receipt Date: 20100510
  Transmission Date: 20101027
  Serious: Yes (Other)
  Sender: FDA-Public Use
  Company Number: 2010JP002773

PATIENT
  Age: 52 Year
  Sex: Male

DRUGS (1)
  1. FUNGUARD (MICAFUNGIN) INJECTION [Suspect]
     Dosage: IV DRIP
     Route: 041
     Dates: start: 20100428, end: 20100428

REACTIONS (4)
  - CHILLS [None]
  - HAEMATURIA [None]
  - NAUSEA [None]
  - PAIN [None]
